FAERS Safety Report 24218284 (Version 2)
Quarter: 2024Q3

REPORT INFORMATION
  Report Type: Spontaneous
  Country: US (occurrence: US)
  Receive Date: 20240816
  Receipt Date: 20240918
  Transmission Date: 20241017
  Serious: Yes (Death, Hospitalization, Other)
  Sender: NOVARTIS
  Company Number: US-002147023-NVSC2024US166308

PATIENT
  Sex: Female
  Weight: 50.8 kg

DRUGS (20)
  1. KISQALI [Suspect]
     Active Substance: RIBOCICLIB
     Indication: Breast cancer metastatic
     Dosage: 600 MG, QD (21 DAYS INTERVAL) (TAKE THREE 200 MG TABLETS (600 MG) ONCE A DAY ON DAYS 1 THROUGH 21 OF
     Route: 048
     Dates: start: 20230921
  2. KISQALI [Suspect]
     Active Substance: RIBOCICLIB
     Indication: Metastases to liver
     Dosage: 400 MG
     Route: 065
  3. KISQALI [Suspect]
     Active Substance: RIBOCICLIB
     Dosage: 200 MG
     Route: 065
     Dates: start: 20231115, end: 20240104
  4. FASLODEX [Concomitant]
     Active Substance: FULVESTRANT
     Indication: Breast cancer
     Dosage: UNK (Q28 DAYS)
     Route: 030
     Dates: start: 20230829, end: 20231219
  5. XANAX [Concomitant]
     Active Substance: ALPRAZOLAM
     Indication: Anxiety
     Dosage: 1 DOSAGE FORM, TID, (TAKE 1 (ONE) TABLET BY MOUTH 3 TIMES DAILY AS NEEDED)
     Route: 048
     Dates: start: 20231215
  6. VITAMIN C [Concomitant]
     Active Substance: ASCORBIC ACID
     Indication: Vitamin C deficiency
     Dosage: UNK, QID (TAKE 1 (ONE) TABLET BY MOUTH 4 TIMES DAILY)
     Route: 048
     Dates: start: 20231024
  7. PROLIA [Concomitant]
     Active Substance: DENOSUMAB
     Indication: Product used for unknown indication
     Dosage: 1 ML, ONCE/ (ONCE EVERY 6 MONTHS)
     Route: 058
  8. VALIUM [Concomitant]
     Active Substance: DIAZEPAM
     Indication: Claustrophobia
     Dosage: 1 DOSAGE FORM, (ONE TABLET BY MOUTH 1 HOUR PRIORI TO SCAN AND SECOND TABLET BY MOUTH AT ARRIVAL, IF
     Route: 048
     Dates: start: 20231228
  9. PEPCID [Concomitant]
     Active Substance: FAMOTIDINE
     Indication: Product used for unknown indication
     Dosage: 1 DOSAGE FORM (TAKE 1 (ONE) TABLET BY MOUTH AS NEEDED)`
     Route: 048
  10. NORCO [Concomitant]
     Active Substance: ACETAMINOPHEN\HYDROCODONE BITARTRATE
     Indication: Pain
     Dosage: 1 DOSAGE FORM (TAKE 1 (ONE) TABLET BY MOUTH EVERY HOURS AS NEEDED)
     Route: 048
     Dates: start: 20231218, end: 20240117
  11. MOTRIN [Concomitant]
     Active Substance: IBUPROFEN
     Indication: Pain
     Dosage: 1 DOSAGE FORM, Q6H, (1 DOSAGE FORM (TAKE 1 (ONE) TABLET BY MOUTH EVERY 6 HOURS AS NEEDED)
     Route: 048
     Dates: start: 20230918
  12. SYNTHROID [Concomitant]
     Active Substance: LEVOTHYROXINE SODIUM
     Indication: Product used for unknown indication
     Dosage: 1 DOSAGE FORM, QD (TAKE 1 (ONE) TABLET BY MOUTH ONCE DAILY)
     Route: 048
     Dates: start: 20230302
  13. LINACLOTIDE [Concomitant]
     Active Substance: LINACLOTIDE
     Indication: Product used for unknown indication
     Dosage: 1 DOSAGE FORM, QD (TAKE 1 CAPSULE BY MOUTH EVERY MORNING 30 MINUTES PRIOR TO 1ST MEAL OF THE DAY)
     Route: 048
     Dates: start: 20230227
  14. NARCAN [Concomitant]
     Active Substance: NALOXONE HYDROCHLORIDE
     Indication: Product used for unknown indication
     Dosage: UNK (SPRAY 1 (ONE) SPRAY INTO THE NOSE AS NEEDED)
     Route: 065
     Dates: start: 20230818
  15. NICOTINAMIDE [Concomitant]
     Active Substance: NIACINAMIDE
     Indication: Product used for unknown indication
     Route: 048
  16. QUININE [Concomitant]
     Active Substance: QUININE
     Indication: Product used for unknown indication
     Dosage: 260 MG (TAKE 260 MG BY MOUTH AS NEEDEDTAKE 260 MG BY MOUTH AS NEEDED)
     Route: 048
  17. ZANAFLEX [Concomitant]
     Active Substance: TIZANIDINE HYDROCHLORIDE
     Indication: Muscle spasms
     Dosage: 1 DOSAGE FORM (TAKE 1 TABLET BY MOUTH EVERY 8 HOURS AS NEEDED)
     Route: 048
     Dates: start: 20231120
  18. KENALOG [Concomitant]
     Active Substance: TRIAMCINOLONE ACETONIDE
     Indication: Product used for unknown indication
     Dosage: UNK
     Route: 065
     Dates: start: 20230820
  19. VALTREX [Concomitant]
     Active Substance: VALACYCLOVIR HYDROCHLORIDE
     Indication: Product used for unknown indication
     Dosage: 2 DOSAGE FORM (TAKE 2 TABLETS ON DAY ONE THEN REPEAT IN 12 HOURS)
     Route: 065
     Dates: start: 20211210
  20. AMBIEN [Concomitant]
     Active Substance: ZOLPIDEM TARTRATE
     Indication: Product used for unknown indication
     Dosage: 1 DOSAGE FORM, QD (TAKE 1 (ONE) TABLET BY MOUTH AT BED TIME)
     Route: 048
     Dates: start: 20231215

REACTIONS (12)
  - Death [Fatal]
  - Lactic acidosis [Unknown]
  - Colitis ischaemic [Unknown]
  - Tachycardia [Unknown]
  - Upper gastrointestinal haemorrhage [Unknown]
  - Septic shock [Unknown]
  - Haematemesis [Unknown]
  - Metastases to liver [Unknown]
  - Constipation [Unknown]
  - Nausea [Unknown]
  - Abdominal pain [Unknown]
  - General physical health deterioration [Unknown]
